FAERS Safety Report 8445839-0 (Version None)
Quarter: 2012Q2

REPORT INFORMATION
  Report Type: 
  Country: None (occurrence: None)
  Receive Date: 20120618
  Receipt Date: 20120604
  Transmission Date: 20120825
  Serious: Yes (Disabling)
  Sender: FDA-Public Use
  Company Number: DE-BAYER-2012-057251

PATIENT
  Age: 37 Year
  Sex: Female

DRUGS (6)
  1. POTASSIUM CHLORIDE [Concomitant]
     Indication: SARCOIDOSIS
     Dosage: UNK
     Dates: start: 20050101
  2. ANAGRELIDE HCL [Suspect]
     Dosage: 1MG
     Route: 048
     Dates: start: 20060524
  3. PREDNISONE TAB [Concomitant]
     Dosage: UNK
     Dates: start: 20050101
  4. ASPIRIN [Suspect]
     Indication: ESSENTIAL THROMBOCYTHAEMIA
     Dosage: UNK
     Route: 048
     Dates: start: 20050101
  5. ANAGRELIDE HCL [Suspect]
     Dosage: 0.5MG
     Route: 048
     Dates: start: 20060601
  6. ANAGRELIDE HCL [Suspect]
     Indication: ESSENTIAL THROMBOCYTHAEMIA
     Dosage: 0.5MG
     Route: 048
     Dates: start: 20060711, end: 20060904

REACTIONS (6)
  - MUSCLE SPASMS [None]
  - EXTRAPYRAMIDAL DISORDER [None]
  - PALPITATIONS [None]
  - ARRHYTHMIA [None]
  - DYSTONIA [None]
  - CARDIOMYOPATHY [None]
